FAERS Safety Report 10040124 (Version 2)
Quarter: 2014Q1

REPORT INFORMATION
  Report Type: Spontaneous
  Country: JP (occurrence: JP)
  Receive Date: 20140326
  Receipt Date: 20140326
  Transmission Date: 20141002
  Serious: Yes (Other)
  Sender: FDA-Public Use
  Company Number: JP-GILEAD-2013-0082204

PATIENT
  Age: 56 Year
  Sex: Male
  Weight: 51 kg

DRUGS (7)
  1. HEPSERA [Suspect]
     Dosage: 10 MG, QOD
     Route: 048
     Dates: start: 20130805
  2. BARACLUDE [Concomitant]
     Dosage: UNK
     Route: 048
     Dates: start: 20100802
  3. BLOPRESS [Concomitant]
     Dosage: UNK
     Route: 048
  4. ZEFIX                              /00821802/ [Concomitant]
     Route: 048
     Dates: start: 20040703, end: 20100801
  5. PHOSRIBBON [Concomitant]
     Dosage: UNK
     Dates: start: 201309
  6. JUZENTAIHOTO                       /07985601/ [Concomitant]
     Dosage: UNK
     Dates: start: 1993
  7. HEPSERA [Suspect]
     Indication: PRODUCT USED FOR UNKNOWN INDICATION
     Dosage: 10MG PER DAY
     Route: 048
     Dates: start: 20060829

REACTIONS (4)
  - Pain in extremity [Recovering/Resolving]
  - Arthralgia [Unknown]
  - Muscular weakness [Unknown]
  - Fanconi syndrome acquired [Unknown]
